FAERS Safety Report 9660793 (Version 3)
Quarter: 2013Q4

REPORT INFORMATION
  Report Type: Spontaneous
  Country: DK (occurrence: DK)
  Receive Date: 20131031
  Receipt Date: 20131129
  Transmission Date: 20140711
  Serious: Yes (Death, Hospitalization)
  Sender: FDA-Public Use
  Company Number: DK-JNJFOC-20131017244

PATIENT
  Age: 53 Year
  Sex: Male
  Weight: 88 kg

DRUGS (8)
  1. REMICADE [Suspect]
     Indication: PSORIATIC ARTHROPATHY
     Route: 042
     Dates: start: 20071107, end: 20081022
  2. HUMIRA [Suspect]
     Indication: PSORIATIC ARTHROPATHY
     Dosage: DOSE NO.: 40
     Route: 065
     Dates: start: 20081128, end: 20130314
  3. DUROGESIC [Concomitant]
     Route: 065
  4. PAMOL [Concomitant]
     Route: 065
  5. OXYNORM [Concomitant]
     Dosage: DOSE NO.: 25
     Route: 065
  6. PREDNISOLONE [Concomitant]
     Dosage: DOSE NO.40
     Route: 065
  7. PANTOPRAZOLE [Concomitant]
     Dosage: DOSE NO.: 150
     Route: 065
  8. FLUCONAZOLE [Concomitant]
     Route: 065

REACTIONS (3)
  - Adenocarcinoma pancreas [Fatal]
  - Fatigue [Not Recovered/Not Resolved]
  - Weight decreased [Not Recovered/Not Resolved]
